FAERS Safety Report 24214052 (Version 1)
Quarter: 2024Q3

REPORT INFORMATION
  Report Type: Spontaneous
  Country: US (occurrence: US)
  Receive Date: 20240815
  Receipt Date: 20240815
  Transmission Date: 20241016
  Serious: Yes (Death, Hospitalization, Other)
  Sender: PFIZER
  Company Number: US-PFIZER INC-202400235061

PATIENT
  Age: 72 Year
  Sex: Male
  Weight: 67.59 kg

DRUGS (10)
  1. TALZENNA [Suspect]
     Active Substance: TALAZOPARIB TOSYLATE
     Indication: Neoplasm malignant
     Dosage: 0.5MG, LOOKS LIKE CAPSULES; 1 CAPSULE BY MOUTH DAILY
     Route: 048
     Dates: start: 202406, end: 20240805
  2. XTANDI [Suspect]
     Active Substance: ENZALUTAMIDE
     Indication: Neoplasm malignant
     Dosage: 40MG TABLET, 4 PILLS PER DAY, TOTAL: 160 MG PER DAY
     Dates: start: 202406
  3. ATORVASTATIN [Concomitant]
     Active Substance: ATORVASTATIN
     Indication: Blood cholesterol increased
     Dosage: 80MG ONCE A DAY
  4. DIGOXIN [Concomitant]
     Active Substance: DIGOXIN
     Indication: Atrial fibrillation
     Dosage: 0.125MG ONE TIME EACH MORNING
  5. ELIQUIS [Concomitant]
     Active Substance: APIXABAN
     Indication: Atrial fibrillation
     Dosage: 5MG TWICE A DAY
  6. LISINOPRIL [Concomitant]
     Active Substance: LISINOPRIL
     Indication: Atrial fibrillation
     Dosage: 20MG TWICE A DAY
  7. METOPROLOL [Concomitant]
     Active Substance: METOPROLOL
     Indication: Atrial fibrillation
     Dosage: 100MG TWICE A DAY
  8. MORPHINE [Concomitant]
     Active Substance: MORPHINE
     Indication: Pain
     Dosage: 30MG TWICE A DAY
     Dates: start: 202405
  9. SOTALOL [Concomitant]
     Active Substance: SOTALOL
     Indication: Atrial fibrillation
     Dosage: 80MG TWICE A DAY
  10. TRAZODONE [Concomitant]
     Active Substance: TRAZODONE HYDROCHLORIDE
     Indication: Sleep disorder
     Dosage: 25MG AT NIGHT

REACTIONS (2)
  - Second primary malignancy [Fatal]
  - Metastases to adrenals [Fatal]
